FAERS Safety Report 20517842 (Version 4)
Quarter: 2022Q1

REPORT INFORMATION
  Report Type: Spontaneous
  Country: GB (occurrence: GB)
  Receive Date: 20220225
  Receipt Date: 20220321
  Transmission Date: 20220423
  Serious: Yes (Hospitalization, Other)
  Sender: FDA-Public Use
  Company Number: None

PATIENT
  Age: 34 Year
  Sex: Male
  Weight: 86 kg

DRUGS (4)
  1. IBUPROFEN [Suspect]
     Active Substance: IBUPROFEN
     Indication: Product used for unknown indication
     Dosage: UNK
  2. PREDNISOLONE [Suspect]
     Active Substance: PREDNISOLONE
     Indication: Product used for unknown indication
     Dosage: UNK
  3. MODERNA COVID-19 VACCINE [Suspect]
     Active Substance: ELASOMERAN
     Indication: Product used for unknown indication
     Dosage: UNK (DOSE 3C), START 31-JAN-2021
     Dates: end: 20210131
  4. COLCHICINE [Concomitant]
     Active Substance: COLCHICINE
     Dosage: UNK

REACTIONS (12)
  - Pericarditis [Recovering/Resolving]
  - Pleuropericarditis [Unknown]
  - Pericardial effusion [Recovered/Resolved]
  - Syncope [Unknown]
  - Chest pain [Unknown]
  - Pleural effusion [Unknown]
  - Lymphadenopathy mediastinal [Unknown]
  - Hilar lymphadenopathy [Unknown]
  - Atelectasis [Unknown]
  - Pyrexia [Unknown]
  - Dyspnoea [Recovered/Resolved]
  - Fatigue [Unknown]

NARRATIVE: CASE EVENT DATE: 20210115
